FAERS Safety Report 25757461 (Version 1)
Quarter: 2025Q3

REPORT INFORMATION
  Report Type: Spontaneous
  Country: EU (occurrence: EU)
  Receive Date: 20250903
  Receipt Date: 20250903
  Transmission Date: 20251020
  Serious: Yes (Hospitalization)
  Sender: MYLAN
  Company Number: EU-BIOGARAN-B25001457

PATIENT
  Sex: Female

DRUGS (2)
  1. ALPRAZOLAM [Suspect]
     Active Substance: ALPRAZOLAM
     Indication: Anxiety
     Dosage: QD (MINUMUM 5 TABLETS DAILY)
  2. ALPRAZOLAM [Suspect]
     Active Substance: ALPRAZOLAM

REACTIONS (4)
  - Malaise [Unknown]
  - Eating disorder [Unknown]
  - Inappropriate schedule of product administration [Unknown]
  - Intentional product misuse [Unknown]
